FAERS Safety Report 19999517 (Version 15)
Quarter: 2025Q1

REPORT INFORMATION
  Report Type: Spontaneous
  Country: DE (occurrence: DE)
  Receive Date: 20211027
  Receipt Date: 20250123
  Transmission Date: 20250409
  Serious: Yes (Hospitalization, Other)
  Sender: CELLTRION
  Company Number: DE-CELLTRION INC.-2021DE014495

PATIENT

DRUGS (14)
  1. RITUXIMAB [Suspect]
     Active Substance: RITUXIMAB
     Indication: Neuromyelitis optica spectrum disorder
     Route: 042
     Dates: start: 20220831, end: 20220831
  2. RITUXIMAB [Suspect]
     Active Substance: RITUXIMAB
     Route: 042
     Dates: start: 20210818
  3. RITUXIMAB [Suspect]
     Active Substance: RITUXIMAB
     Route: 042
     Dates: start: 20210803, end: 20220831
  4. PALEXIA [Concomitant]
     Active Substance: TAPENTADOL HYDROCHLORIDE
  5. ESOMEPRAZOLE [Concomitant]
     Active Substance: ESOMEPRAZOLE
  6. CLONIDINE [Concomitant]
     Active Substance: CLONIDINE
  7. ENOXAPARIN SODIUM [Concomitant]
     Active Substance: ENOXAPARIN SODIUM
  8. LACTULOSE [Concomitant]
     Active Substance: LACTULOSE
  9. CHOLECALCIFEROL [Concomitant]
     Active Substance: CHOLECALCIFEROL
     Dosage: 20000 IU, 1/WEEK
  10. MIRTAZAPINE [Concomitant]
     Active Substance: MIRTAZAPINE
  11. PREDNISOLONE [Concomitant]
     Active Substance: PREDNISOLONE
  12. PREGABALIN [Concomitant]
     Active Substance: PREGABALIN
  13. CITALOPRAM [Concomitant]
     Active Substance: CITALOPRAM
     Route: 065
  14. DULOXETINE [Concomitant]
     Active Substance: DULOXETINE

REACTIONS (17)
  - Immunodeficiency [Recovered/Resolved]
  - Cystitis noninfective [Recovered/Resolved]
  - Multiple sclerosis relapse [Recovered/Resolved]
  - Pneumonia [Recovered/Resolved]
  - Dyspnoea [Recovered/Resolved]
  - Pseudomonas infection [Not Recovered/Not Resolved]
  - Pain in extremity [Not Recovered/Not Resolved]
  - COVID-19 [Recovered/Resolved]
  - Sepsis [Unknown]
  - Off label use [Unknown]
  - B-lymphocyte abnormalities [Not Recovered/Not Resolved]
  - Obstructive airways disorder [Recovered/Resolved]
  - Sleep apnoea syndrome [Recovered/Resolved]
  - B-lymphocyte count increased [Not Recovered/Not Resolved]
  - Decreased appetite [Recovered/Resolved]
  - Depressed mood [Recovered/Resolved]
  - Pyrexia [Recovered/Resolved]

NARRATIVE: CASE EVENT DATE: 20210803
